FAERS Safety Report 7388790-X (Version None)
Quarter: 2011Q2

REPORT INFORMATION
  Report Type: 
  Country: None (occurrence: None)
  Receive Date: 20110401
  Receipt Date: 20110322
  Transmission Date: 20111010
  Serious: Yes (Other)
  Sender: FDA-Public Use
  Company Number: US-PFIZER INC-2011038703

PATIENT
  Sex: Female

DRUGS (6)
  1. PROZAC [Suspect]
     Indication: FIBROMYALGIA
  2. CYMBALTA [Suspect]
     Indication: FIBROMYALGIA
  3. PROZAC [Suspect]
     Indication: DEPRESSION
     Dosage: UNKNOWN
  4. CYMBALTA [Suspect]
     Indication: DEPRESSION
     Dosage: 1 DF, SINGLE
  5. LEXAPRO [Suspect]
     Indication: DEPRESSION
     Dosage: UNKNOWN
  6. LEXAPRO [Suspect]
     Indication: FIBROMYALGIA

REACTIONS (2)
  - SUICIDAL IDEATION [None]
  - DEPRESSION [None]
